FAERS Safety Report 4414051-4 (Version None)
Quarter: 2004Q3

REPORT INFORMATION
  Report Type: 
  Country: None (occurrence: None)
  Receive Date: 20040803
  Receipt Date: 20040722
  Transmission Date: 20050211
  Serious: Yes (Other)
  Sender: FDA-Public Use
  Company Number: 374772

PATIENT
  Age: 66 Year
  Sex: Male

DRUGS (2)
  1. CARVEDILOL [Suspect]
     Dosage: 10MG PER DAY
     Route: 048
     Dates: start: 20021215, end: 20030215
  2. TICLOPIDINE HCL [Suspect]
     Dosage: 100MG PER DAY
     Route: 048
     Dates: start: 20021215, end: 20030215

REACTIONS (1)
  - LIVER DISORDER [None]
